FAERS Safety Report 20921959 (Version 2)
Quarter: 2022Q3

REPORT INFORMATION
  Report Type: Spontaneous
  Country: US (occurrence: None)
  Receive Date: 20220607
  Receipt Date: 20220705
  Transmission Date: 20221027
  Serious: No
  Sender: FDA-Public Use
  Company Number: 2022A197640

PATIENT
  Age: 20954 Day
  Sex: Female
  Weight: 74.4 kg

DRUGS (2)
  1. FASENRA [Suspect]
     Active Substance: BENRALIZUMAB
     Indication: Eosinophil count
     Route: 058
     Dates: start: 202203
  2. SYMBICORT [Suspect]
     Active Substance: BUDESONIDE\FORMOTEROL FUMARATE DIHYDRATE
     Route: 055

REACTIONS (13)
  - Wheezing [Recovered/Resolved]
  - Dysphonia [Recovered/Resolved]
  - Dyspnoea [Recovered/Resolved]
  - Secretion discharge [Recovered/Resolved]
  - Musculoskeletal discomfort [Unknown]
  - Tracheomalacia [Unknown]
  - Cerebral disorder [Unknown]
  - Haemoglobin decreased [Unknown]
  - Fall [Unknown]
  - Head injury [Unknown]
  - Confusional state [Not Recovered/Not Resolved]
  - Cardiac disorder [Unknown]
  - Weight increased [Not Recovered/Not Resolved]

NARRATIVE: CASE EVENT DATE: 20101004
